FAERS Safety Report 24176613 (Version 1)
Quarter: 2024Q3

REPORT INFORMATION
  Report Type: Spontaneous
  Country: US (occurrence: US)
  Receive Date: 20240806
  Receipt Date: 20240806
  Transmission Date: 20241017
  Serious: Yes (Other)
  Sender: BRISTOL MYERS SQUIBB
  Company Number: US-BRISTOL-MYERS SQUIBB COMPANY-2024-121915

PATIENT
  Age: 79 Year
  Sex: Female
  Weight: 58.51 kg

DRUGS (2)
  1. REVLIMID [Suspect]
     Active Substance: LENALIDOMIDE
     Indication: Plasma cell myeloma
     Dosage: EVERY OTHER DAY 21 DAYS ON 7 DAYS OFF
     Route: 048
     Dates: start: 20240423
  2. REVLIMID [Suspect]
     Active Substance: LENALIDOMIDE
     Dosage: EVERY OTHER DAY 21 DAYS ON 7 DAYS OFF
     Route: 048
     Dates: start: 20240717

REACTIONS (4)
  - Swelling [Recovered/Resolved]
  - Oedema [Unknown]
  - Hypokalaemia [Unknown]
  - Off label use [Unknown]
